FAERS Safety Report 6356300-1 (Version None)
Quarter: 2009Q3

REPORT INFORMATION
  Report Type: 
  Country: None (occurrence: None)
  Receive Date: 20090914
  Receipt Date: 20090914
  Transmission Date: 20100115
  Serious: Yes (Death, Hospitalization, Other)
  Sender: FDA-Public Use
  Company Number: None

PATIENT
  Age: 69 Year
  Sex: Male
  Weight: 95.2554 kg

DRUGS (1)
  1. AMIODARONE HCL [Suspect]
     Indication: ATRIAL FIBRILLATION
     Dosage: 200 MG TABLESAN 3X/DAY PO
     Route: 048
     Dates: start: 20080415, end: 20080528

REACTIONS (21)
  - AMNESIA [None]
  - ASTHENIA [None]
  - COORDINATION ABNORMAL [None]
  - COUGH [None]
  - DECREASED APPETITE [None]
  - DELIRIUM [None]
  - DYSGEUSIA [None]
  - DYSPNOEA [None]
  - FATIGUE [None]
  - HALLUCINATION [None]
  - INSOMNIA [None]
  - MALAISE [None]
  - MUSCLE ATROPHY [None]
  - MUSCULAR WEAKNESS [None]
  - NAUSEA [None]
  - OCULAR ICTERUS [None]
  - PRURITUS [None]
  - RASH GENERALISED [None]
  - SKIN DISCOLOURATION [None]
  - TINNITUS [None]
  - TREMOR [None]
